FAERS Safety Report 18732314 (Version 4)
Quarter: 2021Q4

REPORT INFORMATION
  Report Type: Report from Study
  Country: US (occurrence: US)
  Receive Date: 20210113
  Receipt Date: 20211104
  Transmission Date: 20220303
  Serious: Yes (Hospitalization)
  Sender: FDA-Public Use
  Company Number: US-SEATTLE GENETICS-2021SGN00014

PATIENT
  Age: 78 Year
  Sex: Female

DRUGS (3)
  1. TUCATINIB [Suspect]
     Active Substance: TUCATINIB
     Indication: Breast cancer female
     Dosage: UNK
     Route: 065
  2. TUCATINIB [Suspect]
     Active Substance: TUCATINIB
     Dosage: UNK
     Route: 065
  3. LYNPARZA [Suspect]
     Active Substance: OLAPARIB
     Indication: Product used for unknown indication

REACTIONS (5)
  - Hospitalisation [Unknown]
  - Cholecystectomy [Unknown]
  - Anxiety [Unknown]
  - Somnolence [Unknown]
  - Malaise [Unknown]

NARRATIVE: CASE EVENT DATE: 20210601
